FAERS Safety Report 7774649-2 (Version None)
Quarter: 2011Q3

REPORT INFORMATION
  Report Type: 
  Country: None (occurrence: None)
  Receive Date: 20110923
  Receipt Date: 20110914
  Transmission Date: 20111222
  Serious: Yes (Death, Life-Threatening, Hospitalization)
  Sender: FDA-Public Use
  Company Number: US-PFIZER INC-2011192735

PATIENT
  Sex: Female
  Weight: 87.7 kg

DRUGS (15)
  1. VICOPROFEN [Concomitant]
     Dosage: 7.5-200 MG EVERY 4HRS, AS NEEDED
     Route: 048
  2. OXYCONTIN [Concomitant]
     Dosage: 20 MG, 2X/DAY
     Route: 048
     Dates: start: 20110726
  3. ONDANSETRON [Concomitant]
     Dosage: 4 MG, AS NEEDED
     Route: 048
  4. ALBUTEROL [Concomitant]
     Dosage: 90 MCG, 1 PUFF, AS NEEDED
     Route: 055
     Dates: start: 20110807
  5. DEXAMETHASONE [Suspect]
     Dosage: 4 MG, 2X/DAY
     Route: 048
     Dates: start: 20110705
  6. CALCIUM [Concomitant]
     Dosage: 500 MG, 2X/DAY
     Route: 048
  7. FOLIC ACID [Concomitant]
     Dosage: 1 MG, 1X/DAY
     Route: 048
  8. LIPITOR [Concomitant]
     Dosage: 10 MG, 1X/DAY
     Route: 048
  9. PROCHLORPERAZINE [Concomitant]
     Dosage: 10 MG, 1X/DAY
     Route: 048
  10. LEVOTHYROXINE [Concomitant]
     Dosage: 100 MG, 1X/DAY
     Route: 048
  11. OMEPRAZOLE [Concomitant]
     Dosage: 20 MG, 1X/DAY
     Route: 048
  12. LACTULOSE [Concomitant]
     Dosage: 20/30 GM/ML, 15 ML Q6 HRS, AS NEEDED
     Route: 048
     Dates: start: 20110705
  13. CRIZOTINIB [Suspect]
     Indication: NON-SMALL CELL LUNG CANCER
     Dosage: 250 MG, 2X/DAY
     Route: 048
     Dates: start: 20110727, end: 20110816
  14. COLACE [Concomitant]
     Dosage: 100 MG, 1X/DAY
     Route: 048
  15. CLONAZEPAM [Concomitant]
     Dosage: 0.5 MG, 1X/DAY
     Route: 048
     Dates: start: 20110807

REACTIONS (1)
  - DYSPNOEA [None]
